FAERS Safety Report 26141240 (Version 1)
Quarter: 2025Q4

REPORT INFORMATION
  Report Type: Spontaneous
  Country: AU (occurrence: AU)
  Receive Date: 20251210
  Receipt Date: 20251210
  Transmission Date: 20260118
  Serious: Yes (Hospitalization)
  Sender: PFIZER
  Company Number: AU-PFIZER INC-PV202500143641

PATIENT
  Age: 75 Year

DRUGS (1)
  1. ELREXFIO [Suspect]
     Active Substance: ELRANATAMAB-BCMM
     Route: 058

REACTIONS (2)
  - Cardiac failure [Unknown]
  - Atrial fibrillation [Unknown]
